FAERS Safety Report 6693702-8 (Version None)
Quarter: 2010Q2

REPORT INFORMATION
  Report Type: 
  Country: None (occurrence: None)
  Receive Date: 20100423
  Receipt Date: 20100409
  Transmission Date: 20101027
  Serious: Yes (Other)
  Sender: FDA-Public Use
  Company Number: DE-RANBAXY-2010RR-32890

PATIENT
  Age: 65 Year
  Sex: Male

DRUGS (1)
  1. CEFACLOR 500MG BASICS KAPSELN [Suspect]
     Indication: SINUSITIS
     Dosage: UNK
     Dates: start: 20100323, end: 20100323

REACTIONS (1)
  - INFLAMMATION [None]
